FAERS Safety Report 7545705-9 (Version None)
Quarter: 2011Q2

REPORT INFORMATION
  Report Type: 
  Country: None (occurrence: None)
  Receive Date: 20110613
  Receipt Date: 20110613
  Transmission Date: 20111010
  Serious: Yes (Other)
  Sender: FDA-Public Use
  Company Number: None

PATIENT
  Age: 53 Year
  Sex: Female
  Weight: 77.1115 kg

DRUGS (1)
  1. LIVALO [Suspect]
     Indication: BLOOD CHOLESTEROL INCREASED
     Dosage: T DAILY PO
     Route: 048
     Dates: start: 20110524, end: 20110606

REACTIONS (3)
  - GASTRITIS EROSIVE [None]
  - HEADACHE [None]
  - VISUAL ACUITY REDUCED [None]
